FAERS Safety Report 14563495 (Version 1)
Quarter: 2018Q1

REPORT INFORMATION
  Report Type: Spontaneous
  Country: US (occurrence: US)
  Receive Date: 20180222
  Receipt Date: 20180222
  Transmission Date: 20180509
  Serious: Yes (Other)
  Sender: FDA-Public Use
  Company Number: None

PATIENT
  Age: 28 Year
  Sex: Female
  Weight: 52.62 kg

DRUGS (1)
  1. LEVETIRACETAM 1000 MG [Suspect]
     Active Substance: LEVETIRACETAM
     Indication: SEIZURE
     Route: 048
     Dates: start: 2010, end: 2012

REACTIONS (2)
  - Akathisia [None]
  - Abnormal behaviour [None]

NARRATIVE: CASE EVENT DATE: 2010
